FAERS Safety Report 8499179-4 (Version None)
Quarter: 2012Q2

REPORT INFORMATION
  Report Type: 
  Country: None (occurrence: None)
  Receive Date: 20120405
  Receipt Date: 20100629
  Transmission Date: 20120825
  Serious: Yes (Other)
  Sender: FDA-Public Use
  Company Number: PHHY2010US43840

PATIENT
  Age: 79 Year
  Sex: Female

DRUGS (10)
  1. FISH OIL (FISH OIL) [Concomitant]
  2. MULTIVITAMINS (ASCORBIC ACID, ERGOCALCIFEROL, FOLIC ACID, NICOTINAMIDE [Concomitant]
  3. VITAMIN D [Concomitant]
  4. FOLIC ACID [Concomitant]
  5. ZEGERID [Concomitant]
  6. RECLAST [Suspect]
     Dosage: INFUSION
     Dates: start: 20100112
  7. METHOTREXATE SODIUM [Concomitant]
  8. METOPROLOL TARTRATE [Concomitant]
  9. CRESTOR [Concomitant]
  10. VIACTIV (CALCIUM, COLECALCIFEROL) [Concomitant]

REACTIONS (13)
  - INFLUENZA LIKE ILLNESS [None]
  - ARTHRALGIA [None]
  - JOINT STIFFNESS [None]
  - MUSCULOSKELETAL STIFFNESS [None]
  - GAIT DISTURBANCE [None]
  - CREPITATIONS [None]
  - MUSCULOSKELETAL DISCOMFORT [None]
  - PAIN IN EXTREMITY [None]
  - IRITIS [None]
  - PAIN IN JAW [None]
  - ABDOMINAL PAIN UPPER [None]
  - BACK PAIN [None]
  - EYELID PTOSIS [None]
